FAERS Safety Report 25735692 (Version 1)
Quarter: 2025Q3

REPORT INFORMATION
  Report Type: Spontaneous
  Country: US (occurrence: US)
  Receive Date: 20250828
  Receipt Date: 20250828
  Transmission Date: 20251021
  Serious: No
  Sender: NOVARTIS
  Company Number: US-002147023-NVSC2025US130326

PATIENT
  Age: 77 Year
  Sex: Female
  Weight: 43.991 kg

DRUGS (2)
  1. TABRECTA [Suspect]
     Active Substance: CAPMATINIB
     Indication: Lung neoplasm malignant
     Dosage: 400 MG, BID
     Route: 065
  2. TABRECTA [Suspect]
     Active Substance: CAPMATINIB
     Dosage: 200 MG, BID
     Route: 048
     Dates: start: 20250609, end: 20250813

REACTIONS (7)
  - Muscle spasms [Unknown]
  - Gastrointestinal pain [Unknown]
  - Lip swelling [Unknown]
  - Dizziness [Unknown]
  - Chest pain [Unknown]
  - Peripheral swelling [Unknown]
  - Asthenia [Unknown]

NARRATIVE: CASE EVENT DATE: 20250813
